FAERS Safety Report 14056200 (Version 1)
Quarter: 2017Q4

REPORT INFORMATION
  Report Type: Spontaneous
  Country: FR (occurrence: FR)
  Receive Date: 20171006
  Receipt Date: 20171006
  Transmission Date: 20180321
  Serious: Yes (Other)
  Sender: FDA-Public Use
  Company Number: FR-MERCK KGAA-2029015

PATIENT
  Age: 44 Year
  Sex: Female
  Weight: 87 kg

DRUGS (1)
  1. NOVOTHYROX [Suspect]
     Active Substance: LEVOTHYROXINE SODIUM
     Indication: AUTOIMMUNE THYROIDITIS
     Route: 048
     Dates: start: 20170703, end: 20170905

REACTIONS (5)
  - Fatigue [Unknown]
  - Blood thyroid stimulating hormone normal [Unknown]
  - Morose [Unknown]
  - Arthralgia [Unknown]
  - Diffuse alopecia [Unknown]

NARRATIVE: CASE EVENT DATE: 20170815
